FAERS Safety Report 5355853-X (Version None)
Quarter: 2007Q2

REPORT INFORMATION
  Report Type: 
  Country: None (occurrence: None)
  Receive Date: 20070530
  Receipt Date: 20070207
  Transmission Date: 20071010
  Serious: Yes (Hospitalization)
  Sender: FDA-Public Use
  Company Number: US200610001255

PATIENT
  Age: 36 Year
  Sex: Female
  Weight: 135.1 kg

DRUGS (24)
  1. ZYPREXA [Suspect]
     Dosage: SEE IMAGE
     Route: 048
  2. CLONAZEPAM [Concomitant]
  3. BENZTROPINE MESYLATE (BENZATHROPINE MESILATE) [Concomitant]
  4. TRAZODONE HCL [Concomitant]
  5. PREMARIN [Concomitant]
  6. ATENOLOL [Concomitant]
  7. CLARITIN [Concomitant]
  8. CEPHALEXIN [Concomitant]
  9. LASIX (FUROSEMIDE, FUROSEMIDE SODIUM) [Concomitant]
  10. KLOR-CON [Concomitant]
  11. PRILOSEC [Concomitant]
  12. ZANTAC [Concomitant]
  13. NAPROSYN [Concomitant]
  14. DITROPAN [Concomitant]
  15. VIOXX [Concomitant]
  16. ACTOS [Concomitant]
  17. HUMULIN N [Concomitant]
  18. HUMULIN 30/70 (INSULIN HUMAN INJECTION, ISOPHANE) [Concomitant]
  19. SEROQUEL [Concomitant]
  20. HALOPERIDOL DECANOATE [Concomitant]
  21. DEPAKOTE ER [Concomitant]
  22. RISPERIDONE [Concomitant]
  23. NOVOLIN 70/30 [Concomitant]
  24. NOVOLOG (INSUSLIN ASPART) [Concomitant]

REACTIONS (9)
  - ANGINA PECTORIS [None]
  - CARDIAC FAILURE CONGESTIVE [None]
  - DYSPNOEA EXERTIONAL [None]
  - IRRITABLE BOWEL SYNDROME [None]
  - NON-CARDIAC CHEST PAIN [None]
  - PELVIC PAIN [None]
  - WEIGHT DECREASED [None]
  - WEIGHT INCREASED [None]
  - WHEEZING [None]
